FAERS Safety Report 9169280 (Version 2)
Quarter: 2013Q4

REPORT INFORMATION
  Report Type: Spontaneous
  Country: US (occurrence: US)
  Receive Date: 20130318
  Receipt Date: 20131126
  Transmission Date: 20140711
  Serious: Yes (Hospitalization)
  Sender: FDA-Public Use
  Company Number: US-B.I. PHARMACEUTICALS,INC./RIDGEFIELD-2013-BI-06649BP

PATIENT
  Age: 50 Year
  Sex: Male
  Weight: 136.53 kg

DRUGS (12)
  1. PRADAXA [Suspect]
     Dates: start: 20110210, end: 201206
  2. ALPRAZOLAM [Concomitant]
  3. HYDROCODONE [Concomitant]
  4. CYCLOBENZAPRINE [Concomitant]
  5. HUMALOG [Concomitant]
  6. LEVMIR FLEXPEN [Concomitant]
  7. CLONIDINE HCL [Concomitant]
  8. LISINOPRIL [Concomitant]
  9. FUROSEMIDE [Concomitant]
  10. OMEPRAZOLE [Concomitant]
  11. TRAZODONE [Concomitant]
  12. AMLODIPINE [Concomitant]

REACTIONS (1)
  - Gastrointestinal haemorrhage [Unknown]
